APPROVED DRUG PRODUCT: VORICONAZOLE
Active Ingredient: VORICONAZOLE
Strength: 200MG/VIAL
Dosage Form/Route: POWDER;INTRAVENOUS
Application: A218533 | Product #001 | TE Code: AP
Applicant: ASPIRO PHARMA LTD
Approved: Apr 3, 2024 | RLD: No | RS: No | Type: RX